FAERS Safety Report 17522999 (Version 2)
Quarter: 2020Q2

REPORT INFORMATION
  Report Type: Spontaneous
  Country: FR (occurrence: FR)
  Receive Date: 20200311
  Receipt Date: 20200415
  Transmission Date: 20200713
  Serious: Yes (Other)
  Sender: FDA-Public Use
  Company Number: FR-AUROBINDO-AUR-APL-2020-011706

PATIENT
  Weight: 29.7 kg

DRUGS (6)
  1. GEMTUZUMAB OZOGAMICIN [Suspect]
     Active Substance: GEMTUZUMAB OZOGAMICIN
     Indication: ACUTE MYELOID LEUKAEMIA
     Dosage: 5.2 MILLIGRAM, ONCE A DAY
     Route: 042
     Dates: start: 20200207, end: 20200207
  2. CYTARABINE. [Suspect]
     Active Substance: CYTARABINE
     Indication: ACUTE MYELOID LEUKAEMIA
     Dosage: 105 MILLIGRAM, AS NEEDED
     Route: 042
     Dates: start: 20200204, end: 20200213
  3. BACTRIM [Concomitant]
     Active Substance: SULFAMETHOXAZOLE\TRIMETHOPRIM
     Indication: PROPHYLAXIS
     Dosage: UNK
     Route: 065
     Dates: start: 20200204
  4. NOXAFIL [Concomitant]
     Active Substance: POSACONAZOLE
     Indication: PROPHYLAXIS
     Dosage: 200 MILLIGRAM, 3 TIMES A DAY
     Route: 065
     Dates: start: 20200212
  5. MITOXANTRONE HYDROCHLORIDE. [Suspect]
     Active Substance: MITOXANTRONE HYDROCHLORIDE
     Indication: ACUTE MYELOID LEUKAEMIA
     Dosage: 13 MILLIGRAM, ONCE A DAY
     Route: 042
     Dates: start: 20200204, end: 20200207
  6. OXALIPLATIN. [Suspect]
     Active Substance: OXALIPLATIN
     Indication: ACUTE MYELOID LEUKAEMIA
     Dosage: 105 MILLIGRAM, EVERY HOUR
     Route: 042
     Dates: start: 20200204, end: 20200213

REACTIONS (4)
  - Pyrexia [Recovered/Resolved]
  - Febrile neutropenia [Recovered/Resolved]
  - White blood cell count decreased [Recovered/Resolved]
  - Rash macular [Recovered/Resolved]

NARRATIVE: CASE EVENT DATE: 20200221
